FAERS Safety Report 25961207 (Version 2)
Quarter: 2025Q4

REPORT INFORMATION
  Report Type: Spontaneous
  Country: JP (occurrence: JP)
  Receive Date: 20251027
  Receipt Date: 20251104
  Transmission Date: 20260118
  Serious: Yes (Hospitalization)
  Sender: ACCORD
  Company Number: JP-MLMSERVICE-20251009-PI668521-00128-5

PATIENT
  Age: 10 Year
  Sex: Male
  Weight: 31.9 kg

DRUGS (75)
  1. ETOPOSIDE [Suspect]
     Active Substance: ETOPOSIDE
     Indication: Ewing^s sarcoma
     Dates: start: 202012, end: 202012
  2. CYCLOPHOSPHAMIDE [Suspect]
     Active Substance: CYCLOPHOSPHAMIDE
     Indication: Ewing^s sarcoma
     Dates: start: 202012, end: 202012
  3. DOXORUBICIN [Suspect]
     Active Substance: DOXORUBICIN
     Indication: Ewing^s sarcoma
     Dates: start: 202012, end: 202012
  4. IFOSFAMIDE [Suspect]
     Active Substance: IFOSFAMIDE
     Indication: Ewing^s sarcoma
     Dates: start: 202012, end: 202012
  5. VINCRISTINE [Suspect]
     Active Substance: VINCRISTINE
     Indication: Ewing^s sarcoma
     Dates: start: 202012, end: 202012
  6. VINCRISTINE [Suspect]
     Active Substance: VINCRISTINE
     Indication: Metastases to lung
     Dates: start: 202004, end: 202004
  7. ETOPOSIDE [Suspect]
     Active Substance: ETOPOSIDE
     Indication: Metastasis
     Dates: start: 202103, end: 202103
  8. DOXORUBICIN [Suspect]
     Active Substance: DOXORUBICIN
     Indication: Metastasis
     Dates: start: 202102, end: 202102
  9. DOXORUBICIN [Suspect]
     Active Substance: DOXORUBICIN
     Indication: Metastases to lung
     Dates: start: 202103, end: 202103
  10. DOXORUBICIN [Suspect]
     Active Substance: DOXORUBICIN
     Indication: Ewing^s sarcoma
     Dates: start: 202104, end: 202104
  11. VINCRISTINE [Suspect]
     Active Substance: VINCRISTINE
     Indication: Ewing^s sarcoma
     Dates: start: 202002, end: 202002
  12. CYCLOPHOSPHAMIDE [Suspect]
     Active Substance: CYCLOPHOSPHAMIDE
     Indication: Ewing^s sarcoma
     Dates: start: 202101, end: 202101
  13. CYCLOPHOSPHAMIDE [Suspect]
     Active Substance: CYCLOPHOSPHAMIDE
     Indication: Ewing^s sarcoma
     Dates: start: 202102, end: 202102
  14. CYCLOPHOSPHAMIDE [Suspect]
     Active Substance: CYCLOPHOSPHAMIDE
     Indication: Ewing^s sarcoma
     Dates: start: 202103, end: 202103
  15. CYCLOPHOSPHAMIDE [Suspect]
     Active Substance: CYCLOPHOSPHAMIDE
     Indication: Ewing^s sarcoma
     Dates: start: 202104, end: 202104
  16. CYCLOPHOSPHAMIDE [Suspect]
     Active Substance: CYCLOPHOSPHAMIDE
     Indication: Metastases to lung
     Dates: start: 202101, end: 202101
  17. CYCLOPHOSPHAMIDE [Suspect]
     Active Substance: CYCLOPHOSPHAMIDE
     Indication: Metastases to lung
     Dates: start: 202102, end: 202102
  18. CYCLOPHOSPHAMIDE [Suspect]
     Active Substance: CYCLOPHOSPHAMIDE
     Indication: Metastases to lung
     Dates: start: 202103, end: 202103
  19. CYCLOPHOSPHAMIDE [Suspect]
     Active Substance: CYCLOPHOSPHAMIDE
     Indication: Metastases to lung
     Dates: start: 202104, end: 202104
  20. CYCLOPHOSPHAMIDE [Suspect]
     Active Substance: CYCLOPHOSPHAMIDE
     Indication: Metastasis
     Dates: start: 202101, end: 202101
  21. CYCLOPHOSPHAMIDE [Suspect]
     Active Substance: CYCLOPHOSPHAMIDE
     Indication: Metastasis
     Dates: start: 202102, end: 202102
  22. CYCLOPHOSPHAMIDE [Suspect]
     Active Substance: CYCLOPHOSPHAMIDE
     Indication: Metastasis
     Dates: start: 202103, end: 202103
  23. CYCLOPHOSPHAMIDE [Suspect]
     Active Substance: CYCLOPHOSPHAMIDE
     Indication: Metastasis
     Dates: start: 202104, end: 202104
  24. IFOSFAMIDE [Suspect]
     Active Substance: IFOSFAMIDE
     Indication: Ewing^s sarcoma
     Dates: start: 202101, end: 202101
  25. IFOSFAMIDE [Suspect]
     Active Substance: IFOSFAMIDE
     Indication: Ewing^s sarcoma
     Dates: start: 202103, end: 202103
  26. IFOSFAMIDE [Suspect]
     Active Substance: IFOSFAMIDE
     Indication: Ewing^s sarcoma
     Dates: start: 202104, end: 202104
  27. IFOSFAMIDE [Suspect]
     Active Substance: IFOSFAMIDE
     Indication: Ewing^s sarcoma
     Dates: start: 202005, end: 202005
  28. IFOSFAMIDE [Suspect]
     Active Substance: IFOSFAMIDE
     Indication: Metastasis
     Dates: start: 202012, end: 202012
  29. IFOSFAMIDE [Suspect]
     Active Substance: IFOSFAMIDE
     Indication: Metastases to lung
     Dates: start: 202101, end: 202101
  30. IFOSFAMIDE [Suspect]
     Active Substance: IFOSFAMIDE
     Indication: Metastases to lung
     Dates: start: 202103, end: 202103
  31. IFOSFAMIDE [Suspect]
     Active Substance: IFOSFAMIDE
     Indication: Metastases to lung
     Dates: start: 202102, end: 202102
  32. IFOSFAMIDE [Suspect]
     Active Substance: IFOSFAMIDE
     Indication: Metastases to lung
     Dates: start: 202104, end: 202104
  33. IFOSFAMIDE [Suspect]
     Active Substance: IFOSFAMIDE
     Indication: Metastases to lung
     Dates: start: 202005, end: 202005
  34. ETOPOSIDE [Suspect]
     Active Substance: ETOPOSIDE
     Indication: Metastases to lung
     Dates: start: 202103, end: 202103
  35. ETOPOSIDE [Suspect]
     Active Substance: ETOPOSIDE
     Indication: Metastases to lung
     Dates: start: 202104, end: 202104
  36. ETOPOSIDE [Suspect]
     Active Substance: ETOPOSIDE
     Indication: Metastases to lung
     Dates: start: 202105, end: 202105
  37. DOXORUBICIN [Suspect]
     Active Substance: DOXORUBICIN
     Indication: Metastases to lung
     Dates: start: 202104, end: 202104
  38. ETOPOSIDE [Suspect]
     Active Substance: ETOPOSIDE
     Indication: Metastasis
     Dates: start: 202101, end: 202101
  39. ETOPOSIDE [Suspect]
     Active Substance: ETOPOSIDE
     Indication: Metastasis
     Dates: start: 202104, end: 202104
  40. ETOPOSIDE [Suspect]
     Active Substance: ETOPOSIDE
     Indication: Metastasis
     Dates: start: 202105, end: 202105
  41. ETOPOSIDE [Suspect]
     Active Substance: ETOPOSIDE
     Indication: Ewing^s sarcoma
     Dates: start: 202101, end: 202101
  42. ETOPOSIDE [Suspect]
     Active Substance: ETOPOSIDE
     Indication: Ewing^s sarcoma
     Dates: start: 202103, end: 202103
  43. ETOPOSIDE [Suspect]
     Active Substance: ETOPOSIDE
     Indication: Ewing^s sarcoma
     Dates: start: 202104, end: 202104
  44. ETOPOSIDE [Suspect]
     Active Substance: ETOPOSIDE
     Indication: Ewing^s sarcoma
     Dates: start: 202105, end: 202105
  45. VINCRISTINE [Suspect]
     Active Substance: VINCRISTINE
     Indication: Ewing^s sarcoma
     Dates: start: 202101, end: 202101
  46. VINCRISTINE [Suspect]
     Active Substance: VINCRISTINE
     Indication: Ewing^s sarcoma
     Dates: start: 202004, end: 202004
  47. VINCRISTINE [Suspect]
     Active Substance: VINCRISTINE
     Indication: Metastases to lung
     Dates: start: 202101, end: 202101
  48. VINCRISTINE [Suspect]
     Active Substance: VINCRISTINE
     Indication: Metastases to lung
     Dates: start: 202002, end: 202002
  49. VINCRISTINE [Suspect]
     Active Substance: VINCRISTINE
     Indication: Metastases to lung
     Dates: start: 202003, end: 202003
  50. VINCRISTINE [Suspect]
     Active Substance: VINCRISTINE
     Indication: Metastasis
     Dates: start: 202101, end: 202101
  51. VINCRISTINE [Suspect]
     Active Substance: VINCRISTINE
     Indication: Metastasis
     Dates: start: 202002, end: 202002
  52. VINCRISTINE [Suspect]
     Active Substance: VINCRISTINE
     Indication: Metastasis
     Dates: start: 202003, end: 202003
  53. VINCRISTINE [Suspect]
     Active Substance: VINCRISTINE
     Indication: Metastasis
     Dates: start: 202004, end: 202004
  54. VINCRISTINE [Suspect]
     Active Substance: VINCRISTINE
     Indication: Ewing^s sarcoma
     Dates: start: 202003, end: 202003
  55. DOXORUBICIN [Suspect]
     Active Substance: DOXORUBICIN
     Indication: Metastases to lung
     Dates: start: 202012, end: 202012
  56. DOXORUBICIN [Suspect]
     Active Substance: DOXORUBICIN
     Indication: Metastasis
     Dates: start: 202012, end: 202012
  57. DOXORUBICIN [Suspect]
     Active Substance: DOXORUBICIN
     Indication: Ewing^s sarcoma
     Dates: start: 202101, end: 202101
  58. DOXORUBICIN [Suspect]
     Active Substance: DOXORUBICIN
     Indication: Ewing^s sarcoma
     Dates: start: 202102, end: 202102
  59. DOXORUBICIN [Suspect]
     Active Substance: DOXORUBICIN
     Indication: Metastases to lung
     Dates: start: 202102, end: 202102
  60. DOXORUBICIN [Suspect]
     Active Substance: DOXORUBICIN
     Indication: Metastasis
     Dates: start: 202101, end: 202101
  61. DOXORUBICIN [Suspect]
     Active Substance: DOXORUBICIN
     Indication: Ewing^s sarcoma
     Dates: start: 202103, end: 202103
  62. DOXORUBICIN [Suspect]
     Active Substance: DOXORUBICIN
     Indication: Metastasis
     Dates: start: 202103, end: 202103
  63. DOXORUBICIN [Suspect]
     Active Substance: DOXORUBICIN
     Indication: Metastasis
     Dates: start: 202104, end: 202104
  64. CYCLOPHOSPHAMIDE [Suspect]
     Active Substance: CYCLOPHOSPHAMIDE
     Indication: Metastases to lung
     Dates: start: 202012, end: 202012
  65. CYCLOPHOSPHAMIDE [Suspect]
     Active Substance: CYCLOPHOSPHAMIDE
     Indication: Metastasis
     Dates: start: 202012, end: 202012
  66. ETOPOSIDE [Suspect]
     Active Substance: ETOPOSIDE
     Indication: Metastases to lung
     Dates: start: 202012, end: 202012
  67. ETOPOSIDE [Suspect]
     Active Substance: ETOPOSIDE
     Indication: Metastasis
     Dates: start: 202012, end: 202012
  68. VINCRISTINE [Suspect]
     Active Substance: VINCRISTINE
     Indication: Metastases to lung
     Dates: start: 202012, end: 202012
  69. VINCRISTINE [Suspect]
     Active Substance: VINCRISTINE
     Indication: Metastasis
     Dates: start: 202012, end: 202012
  70. IFOSFAMIDE [Suspect]
     Active Substance: IFOSFAMIDE
     Indication: Metastasis
     Dates: start: 202101, end: 202101
  71. IFOSFAMIDE [Suspect]
     Active Substance: IFOSFAMIDE
     Indication: Metastasis
     Dates: start: 202103, end: 202103
  72. IFOSFAMIDE [Suspect]
     Active Substance: IFOSFAMIDE
     Indication: Metastasis
     Dates: start: 202104, end: 202104
  73. IFOSFAMIDE [Suspect]
     Active Substance: IFOSFAMIDE
     Indication: Metastasis
     Dates: start: 202105, end: 202105
  74. DOXORUBICIN [Suspect]
     Active Substance: DOXORUBICIN
     Indication: Metastases to lung
     Dates: start: 202101, end: 202101
  75. ETOPOSIDE [Suspect]
     Active Substance: ETOPOSIDE
     Indication: Metastases to lung
     Dates: start: 202101, end: 202101

REACTIONS (1)
  - Pulmonary hypertension [Not Recovered/Not Resolved]

NARRATIVE: CASE EVENT DATE: 20210501
